FAERS Safety Report 17205107 (Version 1)
Quarter: 2019Q4

REPORT INFORMATION
  Report Type: Spontaneous
  Country: FR (occurrence: FR)
  Receive Date: 20191227
  Receipt Date: 20191227
  Transmission Date: 20200122
  Serious: Yes (Hospitalization, Other)
  Sender: FDA-Public Use
  Company Number: FR-AUROBINDO-AUR-APL-2019-107709

PATIENT
  Age: 72 Year
  Sex: Female
  Weight: 76 kg

DRUGS (3)
  1. CAELYX [Suspect]
     Active Substance: DOXORUBICIN HYDROCHLORIDE
     Indication: OVARIAN CANCER
     Dosage: 30 MILLIGRAM/SQ. METER (4 WEEKS)
     Route: 042
     Dates: start: 20190909, end: 20191104
  2. AVASTIN [Suspect]
     Active Substance: BEVACIZUMAB
     Indication: OVARIAN CANCER
     Dosage: 10 MILLIGRAM/KILOGRAM (2 WEEKS)
     Route: 042
     Dates: start: 20190909, end: 20191118
  3. CARBOPLATIN. [Suspect]
     Active Substance: CARBOPLATIN
     Indication: OVARIAN CANCER
     Dosage: 1 DOSAGE FORM (4 WEEKS)
     Route: 042
     Dates: start: 20190909, end: 20191104

REACTIONS (2)
  - Cardiac failure [Recovered/Resolved with Sequelae]
  - Atrial tachycardia [Recovered/Resolved with Sequelae]

NARRATIVE: CASE EVENT DATE: 20191127
